FAERS Safety Report 22810300 (Version 2)
Quarter: 2025Q1

REPORT INFORMATION
  Report Type: Spontaneous
  Country: US (occurrence: US)
  Receive Date: 20230810
  Receipt Date: 20250113
  Transmission Date: 20250409
  Serious: No
  Sender: PFIZER
  Company Number: US-PFIZER INC-202300272044

PATIENT
  Age: 70 Year
  Sex: Female

DRUGS (9)
  1. LINCOMYCIN HYDROCHLORIDE [Suspect]
     Active Substance: LINCOMYCIN HYDROCHLORIDE
  2. DOXYCYCLINE HYCLATE [Suspect]
     Active Substance: DOXYCYCLINE HYCLATE
  3. GENTAMICIN SULFATE [Suspect]
     Active Substance: GENTAMICIN SULFATE
  4. VANCOMYCIN HYDROCHLORIDE [Suspect]
     Active Substance: VANCOMYCIN HYDROCHLORIDE
  5. VIBRAMYCIN [Suspect]
     Active Substance: DOXYCYCLINE
  6. AMLODIPINE [Suspect]
     Active Substance: AMLODIPINE BESYLATE
  7. KEFLEX [Suspect]
     Active Substance: CEPHALEXIN
  8. BACTRIM [Suspect]
     Active Substance: SULFAMETHOXAZOLE\TRIMETHOPRIM
  9. ERYTHROMYCIN BASE [Suspect]
     Active Substance: ERYTHROMYCIN

REACTIONS (2)
  - Drug hypersensitivity [Unknown]
  - Urticaria [Unknown]
